FAERS Safety Report 23835550 (Version 1)
Quarter: 2024Q2

REPORT INFORMATION
  Report Type: Other
  Country: IR (occurrence: IR)
  Receive Date: 20240509
  Receipt Date: 20240509
  Transmission Date: 20240716
  Serious: Yes (Life-Threatening)
  Sender: FDA-Public Use
  Company Number: IR-B.Braun Medical Inc.-2156717

PATIENT
  Age: 3 Month
  Sex: Male

DRUGS (9)
  1. CEFTAZIDIME [Suspect]
     Active Substance: CEFTAZIDIME
  2. COLISTIN [Suspect]
     Active Substance: COLISTIN
  3. MEROPENEM [Suspect]
     Active Substance: MEROPENEM
  4. COTRIMOXAZOLE [Suspect]
     Active Substance: SULFAMETHOXAZOLE\TRIMETHOPRIM
  5. CEFEPIME [Suspect]
     Active Substance: CEFEPIME HYDROCHLORIDE
  6. FLUCONAZOLE [Suspect]
     Active Substance: FLUCONAZOLE
  7. AMPHOTERICIN B [Suspect]
     Active Substance: AMPHOTERICIN B
  8. AMIKACIN SULFATE [Suspect]
     Active Substance: AMIKACIN SULFATE
  9. VANCOMYCIN HYDROCHLORIDE [Suspect]
     Active Substance: VANCOMYCIN HYDROCHLORIDE

REACTIONS (1)
  - Drug ineffective [Unknown]
